FAERS Safety Report 4679853-8 (Version None)
Quarter: 2005Q2

REPORT INFORMATION
  Report Type: 
  Country: None (occurrence: None)
  Receive Date: 20050602
  Receipt Date: 20050311
  Transmission Date: 20051028
  Serious: No
  Sender: FDA-Public Use
  Company Number: US-GLAXOSMITHKLINE-A0549406A

PATIENT
  Age: 9 Month
  Sex: Female

DRUGS (2)
  1. AUGMENTIN XR [Suspect]
     Dates: start: 20050309
  2. TYLENOL SINUS [Concomitant]

REACTIONS (3)
  - AGITATION [None]
  - CONVERSION DISORDER [None]
  - DRUG EXPOSURE VIA BREAST MILK [None]
